FAERS Safety Report 21228268 (Version 2)
Quarter: 2022Q3

REPORT INFORMATION
  Report Type: Spontaneous
  Country: US (occurrence: US)
  Receive Date: 20220818
  Receipt Date: 20220819
  Transmission Date: 20221026
  Serious: No
  Sender: FDA-Public Use
  Company Number: US-PFIZER INC-202201063854

PATIENT
  Age: 78 Year
  Sex: Female
  Weight: 51.71 kg

DRUGS (9)
  1. PAXLOVID [Suspect]
     Active Substance: NIRMATRELVIR\RITONAVIR
     Indication: COVID-19 treatment
     Dosage: 3 DF, THE EVENING DOSE
     Dates: start: 20220812, end: 20220812
  2. PAXLOVID [Suspect]
     Active Substance: NIRMATRELVIR\RITONAVIR
     Dosage: 2 DF, 2X/DAY (1 NIR AND 1 RIT TOGETHER)
     Route: 048
     Dates: start: 20220813
  3. FENOFIBRATE [Concomitant]
     Active Substance: FENOFIBRATE
     Dosage: 96 MG
  4. CELEXA [Concomitant]
     Active Substance: CITALOPRAM HYDROBROMIDE
     Dosage: 10 MG
  5. ASPIRIN [Concomitant]
     Active Substance: ASPIRIN
     Dosage: 81 MG
  6. CALCIUM [Concomitant]
     Active Substance: CALCIUM
     Dosage: 600 IU
  7. VITAMIN D NOS [Concomitant]
     Active Substance: VITAMIN D NOS
     Indication: Osteoporosis
     Dosage: 300 IU
  8. NADOLOL [Concomitant]
     Active Substance: NADOLOL
     Indication: Supraventricular tachycardia
     Dosage: 20 MG, AS NEEDED (PRN BASIS SHE HAS NADOLOL 20MG)
  9. DIAZEPAM [Concomitant]
     Active Substance: DIAZEPAM
     Indication: Muscle spasms
     Dosage: 5 MG

REACTIONS (8)
  - Night sweats [Unknown]
  - Confusional state [Unknown]
  - Feeling abnormal [Unknown]
  - Circumstance or information capable of leading to medication error [Unknown]
  - Product appearance confusion [Unknown]
  - Product colour issue [Unknown]
  - Incorrect dose administered [Unknown]
  - Product prescribing error [Unknown]

NARRATIVE: CASE EVENT DATE: 20220812
